FAERS Safety Report 21376679 (Version 1)
Quarter: 2022Q3

REPORT INFORMATION
  Report Type: Spontaneous
  Country: CN (occurrence: CN)
  Receive Date: 20220926
  Receipt Date: 20220926
  Transmission Date: 20221026
  Serious: Yes (Other)
  Sender: FDA-Public Use
  Company Number: None

PATIENT
  Age: 40 Year
  Sex: Female
  Weight: 55 kg

DRUGS (4)
  1. CYCLOPHOSPHAMIDE [Suspect]
     Active Substance: CYCLOPHOSPHAMIDE
     Indication: Breast cancer female
     Dosage: 950 MG, ONCE DAILY DILUTED WITH 50 ML 0.9% SODIUM CHLORIDE INJECTION AT 10:19
     Route: 041
     Dates: start: 20220825, end: 20220825
  2. SODIUM CHLORIDE [Suspect]
     Active Substance: SODIUM CHLORIDE
     Indication: Medication dilution
     Dosage: 50 ML, ONCE DAILY DILUTED WITH 950 MG OF CYCLOPHOSPHAMIDE INJECTION AT 10:19
     Route: 041
     Dates: start: 20220825, end: 20220825
  3. SODIUM CHLORIDE [Suspect]
     Active Substance: SODIUM CHLORIDE
     Dosage: 250 ML ONCE DAILY DILUTED WITH 120 MG OF DOCETAXEL INJECTION
     Route: 041
     Dates: start: 20220825, end: 20220825
  4. DOCETAXEL [Suspect]
     Active Substance: DOCETAXEL
     Indication: Breast cancer female
     Dosage: 120 MG, ONCE DAILY DILUTED WITH 250 ML OF 0.9% SODIUM CHLORIDE INJECTION AT 10:19
     Route: 041
     Dates: start: 20220825, end: 20220825

REACTIONS (3)
  - White blood cell count decreased [Recovered/Resolved]
  - Fatigue [Unknown]
  - Asthenia [Unknown]

NARRATIVE: CASE EVENT DATE: 20220902
